FAERS Safety Report 9340804 (Version 5)
Quarter: 2014Q1

REPORT INFORMATION
  Report Type: Spontaneous
  Country: US (occurrence: US)
  Receive Date: 20130610
  Receipt Date: 20140326
  Transmission Date: 20141002
  Serious: Yes (Hospitalization, Other)
  Sender: FDA-Public Use
  Company Number: US-009507513-1306USA002134

PATIENT
  Sex: Female
  Weight: 50.34 kg

DRUGS (5)
  1. FOSAMAX [Suspect]
     Indication: OSTEOPOROSIS POSTMENOPAUSAL
     Dosage: 10 MG, QD
     Route: 048
     Dates: start: 20001003
  2. FOSAMAX [Suspect]
     Dosage: 70 MG/2800, QW
     Route: 048
     Dates: start: 2000
  3. FOSAMAX [Suspect]
     Dosage: 70 MG, QW
     Route: 048
     Dates: start: 20010807, end: 20061220
  4. FOSAMAX PLUS D [Suspect]
     Indication: OSTEOPOROSIS POSTMENOPAUSAL
     Dosage: 70 MG/2800, QW
     Route: 048
     Dates: start: 20070329, end: 20081216
  5. ALENDRONATE SODIUM [Suspect]
     Indication: OSTEOPOROSIS POSTMENOPAUSAL
     Dosage: 70 MG, QW
     Route: 048
     Dates: start: 20090320, end: 201107

REACTIONS (31)
  - Intramedullary rod insertion [Recovering/Resolving]
  - Intramedullary rod insertion [Unknown]
  - Iron deficiency anaemia [Unknown]
  - Hypoalbuminaemia [Unknown]
  - Hyperglycaemia [Unknown]
  - Pain [Unknown]
  - Femur fracture [Recovered/Resolved]
  - Femur fracture [Recovering/Resolving]
  - Depression [Unknown]
  - Anxiety [Unknown]
  - Hypothyroidism [Unknown]
  - Blood cholesterol increased [Unknown]
  - Pollakiuria [Unknown]
  - Haemorrhoids [Unknown]
  - Blood pressure decreased [Recovered/Resolved]
  - Fall [Unknown]
  - Osteoporosis [Not Recovered/Not Resolved]
  - Pigmentation disorder [Unknown]
  - Uterine leiomyoma [Unknown]
  - Chest pain [Unknown]
  - Ligament sprain [Unknown]
  - Osteopenia [Unknown]
  - Vitamin D decreased [Unknown]
  - Large intestine polyp [Unknown]
  - Spinal disorder [Unknown]
  - Facet joint syndrome [Unknown]
  - Scoliosis [Unknown]
  - Adverse event [Unknown]
  - Vertebral foraminal stenosis [Unknown]
  - Alopecia [Unknown]
  - Gastrooesophageal reflux disease [Unknown]
